FAERS Safety Report 20033413 (Version 3)
Quarter: 2022Q1

REPORT INFORMATION
  Report Type: Spontaneous
  Country: US (occurrence: US)
  Receive Date: 20211104
  Receipt Date: 20220128
  Transmission Date: 20220424
  Serious: No
  Sender: FDA-Public Use
  Company Number: US-NOVARTISTESTPH-NVSC2021US250623

PATIENT
  Sex: Male

DRUGS (2)
  1. PROMACTA [Suspect]
     Active Substance: ELTROMBOPAG OLAMINE
     Indication: Immune thrombocytopenia
     Dosage: 25 MG, QD (STRENGTH- 25 MG)
     Route: 048
     Dates: start: 202011
  2. PROMACTA [Suspect]
     Active Substance: ELTROMBOPAG OLAMINE
     Dosage: 12.5 MG, QD (STRENGTH- 12.5 MG)
     Route: 048
     Dates: start: 202011

REACTIONS (3)
  - Mental status changes [Unknown]
  - General physical condition abnormal [Unknown]
  - Hepatic enzyme increased [Unknown]
